FAERS Safety Report 6108943-8 (Version None)
Quarter: 2009Q1

REPORT INFORMATION
  Report Type: 
  Country: None (occurrence: None)
  Receive Date: 20090306
  Receipt Date: 20090225
  Transmission Date: 20090719
  Serious: Yes (Other)
  Sender: FDA-Public Use
  Company Number: 2009SP004403

PATIENT
  Age: 63 Year
  Sex: Female
  Weight: 52 kg

DRUGS (1)
  1. TEMOZOLOMIDE [Suspect]
     Indication: RADIOTHERAPY
     Dosage: 120 MCG; PO
     Route: 048
     Dates: start: 20081101, end: 20090101

REACTIONS (1)
  - ALVEOLITIS [None]
